FAERS Safety Report 13373085 (Version 1)
Quarter: 2017Q1

REPORT INFORMATION
  Report Type: Spontaneous
  Country: JP (occurrence: JP)
  Receive Date: 20170327
  Receipt Date: 20170327
  Transmission Date: 20170429
  Serious: Yes (Hospitalization)
  Sender: FDA-Public Use
  Company Number: JP-TEVA-707130ISR

PATIENT
  Age: 90 Year
  Sex: Female

DRUGS (1)
  1. ACTONEL [Suspect]
     Active Substance: RISEDRONATE SODIUM
     Indication: OSTEOPOROSIS
     Route: 048

REACTIONS (4)
  - Pain in extremity [Unknown]
  - Bone deformity [Unknown]
  - Fall [Unknown]
  - Atypical femur fracture [Unknown]
